FAERS Safety Report 15580342 (Version 1)
Quarter: 2018Q4

REPORT INFORMATION
  Report Type: Spontaneous
  Country: CN (occurrence: CN)
  Receive Date: 20181102
  Receipt Date: 20181102
  Transmission Date: 20190205
  Serious: Yes (Death, Other)
  Sender: FDA-Public Use
  Company Number: PHHY2018CN141596

PATIENT
  Sex: Male

DRUGS (1)
  1. TELBIVUDINE [Suspect]
     Active Substance: TELBIVUDINE
     Indication: FOETAL EXPOSURE DURING PREGNANCY
     Dosage: 600 MG, QD
     Route: 064

REACTIONS (8)
  - Decreased appetite [Unknown]
  - Jaundice neonatal [Unknown]
  - Congenital absence of bile ducts [Unknown]
  - Haematemesis [Fatal]
  - Haematochezia [Fatal]
  - Hepatic cirrhosis [Unknown]
  - Faeces pale [Unknown]
  - Foetal exposure during pregnancy [Unknown]
